FAERS Safety Report 6002217-1 (Version None)
Quarter: 2008Q4

REPORT INFORMATION
  Report Type: 
  Country: None (occurrence: None)
  Receive Date: 20081215
  Receipt Date: 20071212
  Transmission Date: 20090506
  Serious: No
  Sender: FDA-Public Use
  Company Number: US-AMGEN-KDL252151

PATIENT
  Sex: Female

DRUGS (20)
  1. ENBREL [Suspect]
     Indication: RHEUMATOID ARTHRITIS
     Route: 058
     Dates: start: 20060420
  2. ARAVA [Concomitant]
  3. ADALAT [Concomitant]
  4. PREMARIN [Concomitant]
  5. ASPIRIN [Concomitant]
  6. SERAX [Concomitant]
  7. AMCINONIDE [Concomitant]
  8. METAMUCIL [Concomitant]
  9. DOCUSATE SODIUM [Concomitant]
  10. MULTI-VITAMINS [Concomitant]
  11. VITAMIN B-12 [Concomitant]
  12. GARLIC [Concomitant]
  13. COENZYME Q10 [Concomitant]
  14. FOLIC ACID [Concomitant]
     Dates: start: 20020901
  15. TYLENOL (CAPLET) [Concomitant]
     Dates: start: 20050901
  16. PREDNISONE TAB [Concomitant]
     Dates: start: 20051101
  17. CELEXA [Concomitant]
     Dates: start: 20070601
  18. ADVAIR DISKUS 250/50 [Concomitant]
     Route: 055
     Dates: start: 20071001
  19. SPIRIVA [Concomitant]
     Route: 055
     Dates: start: 20071001
  20. SENNA [Concomitant]

REACTIONS (1)
  - HERPES ZOSTER [None]
